FAERS Safety Report 22253759 (Version 1)
Quarter: 2023Q2

REPORT INFORMATION
  Report Type: Spontaneous
  Country: CN (occurrence: CN)
  Receive Date: 20230426
  Receipt Date: 20230426
  Transmission Date: 20230721
  Serious: Yes (Death, Hospitalization, Other)
  Sender: FDA-Public Use
  Company Number: CN-CPL-003366

PATIENT
  Age: 3 Year
  Sex: Male

DRUGS (1)
  1. GLYBURIDE [Suspect]
     Active Substance: GLYBURIDE
     Dosage: MISTAKENLY INGESTING GLIBENCLAMIDE

REACTIONS (10)
  - Brain herniation [Fatal]
  - Loss of consciousness [Unknown]
  - Anal incontinence [Unknown]
  - Status epilepticus [Fatal]
  - Toxicity to various agents [Fatal]
  - Hypoglycaemic coma [Fatal]
  - Brain injury [Fatal]
  - Multiple organ dysfunction syndrome [Fatal]
  - Accidental exposure to product by child [Fatal]
  - Brain oedema [Unknown]
